FAERS Safety Report 22075459 (Version 12)
Quarter: 2024Q1

REPORT INFORMATION
  Report Type: Spontaneous
  Country: US (occurrence: US)
  Receive Date: 20230308
  Receipt Date: 20240205
  Transmission Date: 20240410
  Serious: Yes (Other)
  Sender: FDA-Public Use
  Company Number: US-BRISTOL-MYERS SQUIBB COMPANY-2023-033649

PATIENT
  Age: 78 Year
  Sex: Female

DRUGS (5)
  1. POMALYST [Suspect]
     Active Substance: POMALIDOMIDE
     Indication: Plasma cell myeloma
     Dosage: FREQUENCY: OTHER
     Route: 048
     Dates: start: 202301
  2. POMALYST [Suspect]
     Active Substance: POMALIDOMIDE
     Route: 048
     Dates: start: 202306
  3. POMALYST [Suspect]
     Active Substance: POMALIDOMIDE
     Dosage: FREQUENCY- OTHER
     Route: 048
  4. POMALYST [Suspect]
     Active Substance: POMALIDOMIDE
     Dosage: ONCE IN A DAY FOR 2 WEEKS AND 1 WEEK OFF ?FOR 14 DAYS, THEN 7 DAYS OFF
     Route: 048
  5. POMALYST [Suspect]
     Active Substance: POMALIDOMIDE
     Dosage: DAILY FOR 21 DAYS ON AND 7 DAYS OFF
     Route: 048

REACTIONS (24)
  - Muscle spasms [Unknown]
  - Feeling jittery [Unknown]
  - Rhinorrhoea [Unknown]
  - Limb discomfort [Unknown]
  - Weight increased [Unknown]
  - Tremor [Unknown]
  - Hiccups [Unknown]
  - Protein total abnormal [Unknown]
  - Product distribution issue [Unknown]
  - Product dose omission in error [Unknown]
  - Diarrhoea [Unknown]
  - Dry skin [Unknown]
  - Peripheral swelling [Unknown]
  - Abdominal distension [Unknown]
  - Neuropathy peripheral [Not Recovered/Not Resolved]
  - Protein urine present [Unknown]
  - Off label use [Unknown]
  - Melanocytic naevus [Unknown]
  - Glossodynia [Unknown]
  - Peripheral coldness [Unknown]
  - Electric shock sensation [Unknown]
  - Incontinence [Unknown]
  - Memory impairment [Unknown]
  - Product prescribing issue [Unknown]

NARRATIVE: CASE EVENT DATE: 20230307
